FAERS Safety Report 16587690 (Version 2)
Quarter: 2019Q3

REPORT INFORMATION
  Report Type: Spontaneous
  Country: JP (occurrence: JP)
  Receive Date: 20190717
  Receipt Date: 20190718
  Transmission Date: 20191004
  Serious: No
  Sender: FDA-Public Use
  Company Number: JP-GLAXOSMITHKLINE-JP2019JPN117801

PATIENT

DRUGS (1)
  1. SAMTIREL [Suspect]
     Active Substance: ATOVAQUONE
     Dosage: 1 DF, BID
     Route: 048

REACTIONS (4)
  - Decreased appetite [Unknown]
  - Product dose omission [Unknown]
  - Nausea [Unknown]
  - Pyrexia [Unknown]
